FAERS Safety Report 13365150 (Version 1)
Quarter: 2017Q1

REPORT INFORMATION
  Report Type: Report from Study
  Country: JP (occurrence: JP)
  Receive Date: 20170323
  Receipt Date: 20170323
  Transmission Date: 20170429
  Serious: Yes (Hospitalization, Other)
  Sender: FDA-Public Use
  Company Number: JP-MYLANLABS-2012S1015004

PATIENT

DRUGS (29)
  1. MILLIS [Concomitant]
     Indication: PRODUCT USED FOR UNKNOWN INDICATION
     Dosage: 5 MG, UNK
     Route: 062
  2. MERCAPTAMINE MYLAN [Suspect]
     Active Substance: CYSTEAMINE
     Indication: CYSTINOSIS
     Dosage: 450 MG,QID
     Route: 048
     Dates: start: 20120707, end: 20120717
  3. FEBURIC [Concomitant]
     Active Substance: FEBUXOSTAT
     Indication: CHRONIC KIDNEY DISEASE
     Dosage: 10 MG,QD
     Route: 048
     Dates: start: 2001
  4. NOVOLIN R [Concomitant]
     Active Substance: INSULIN HUMAN
     Indication: DIABETES MELLITUS
     Dosage: 20 DF,QD
     Route: 058
     Dates: start: 2007
  5. FEROTYM [Concomitant]
     Active Substance: FERROUS CITRATE\SODIUM
     Indication: CHRONIC KIDNEY DISEASE
     Dosage: 50 MG,QD
     Route: 048
     Dates: start: 2007
  6. RIONA [Concomitant]
     Active Substance: FERRIC CITRATE ANHYDROUS
     Indication: PRODUCT USED FOR UNKNOWN INDICATION
     Dosage: 750 MG, UNK
     Route: 048
     Dates: start: 20160105
  7. NEORAL [Concomitant]
     Active Substance: CYCLOSPORINE
     Indication: RENAL TRANSPLANT
     Dosage: 50 MG,BID
     Route: 048
     Dates: start: 2000
  8. DIOVAN [Concomitant]
     Active Substance: VALSARTAN
     Indication: CHRONIC KIDNEY DISEASE
     Dosage: 40 MG,QD
     Route: 048
     Dates: start: 2006
  9. ZETIA [Concomitant]
     Active Substance: EZETIMIBE
     Indication: CHRONIC KIDNEY DISEASE
     Dosage: 10 MG,QD
     Route: 048
     Dates: start: 2010
  10. BREDININ [Concomitant]
     Active Substance: MIZORIBINE
     Indication: RENAL TRANSPLANT
     Dosage: 150 MG,QD
     Route: 048
     Dates: start: 199404
  11. NOVOLIN R [Concomitant]
     Active Substance: INSULIN HUMAN
     Dosage: 9 IU, UNK
     Route: 058
  12. ALFAROL [Concomitant]
     Active Substance: ALFACALCIDOL
     Indication: PRODUCT USED FOR UNKNOWN INDICATION
     Dosage: 0.25 ?G, UNK
     Route: 048
  13. MERCAPTAMINE MYLAN [Suspect]
     Active Substance: CYSTEAMINE
     Dosage: 200 MG,QID
     Route: 048
     Dates: start: 20120724
  14. MERCAPTAMINE MYLAN [Suspect]
     Active Substance: CYSTEAMINE
     Dosage: 200 MG, QID
     Dates: start: 20150306
  15. PREDONINE [Concomitant]
     Active Substance: PREDNISOLONE
     Indication: RENAL TRANSPLANT
     Dosage: 10 MG,QD
     Route: 048
     Dates: start: 199404
  16. NITROGLYCERIN. [Concomitant]
     Active Substance: NITROGLYCERIN
     Indication: CHRONIC KIDNEY DISEASE
     Dosage: 5 MG,BID
     Route: 062
     Dates: start: 2000
  17. ALPHA D [Concomitant]
     Indication: CHRONIC KIDNEY DISEASE
     Dosage: .25 ?G,QD
     Route: 048
     Dates: start: 2010
  18. THYRADIN-S [Concomitant]
     Active Substance: LEVOTHYROXINE
     Dosage: 75 ?G, UNK
     Route: 048
     Dates: start: 20150710, end: 20170202
  19. MERCAPTAMINE MYLAN [Suspect]
     Active Substance: CYSTEAMINE
     Dosage: 200 MG,QID
     Dates: start: 20120919
  20. MERCAPTAMINE MYLAN [Suspect]
     Active Substance: CYSTEAMINE
     Dosage: 100 MG,QID
     Dates: start: 20121113
  21. PREDONINE [Concomitant]
     Active Substance: PREDNISOLONE
     Dosage: 5 MG, UNK
     Route: 048
  22. THYRADIN-S [Concomitant]
     Active Substance: LEVOTHYROXINE
     Indication: CHRONIC KIDNEY DISEASE
     Dosage: 75 ?G,QD
     Route: 048
  23. FRANDOL [Concomitant]
     Active Substance: ISOSORBIDE DINITRATE
     Indication: PRODUCT USED FOR UNKNOWN INDICATION
     Dosage: 40 MG, UNK
     Route: 062
  24. CALCIUM LACTATE [Concomitant]
     Active Substance: CALCIUM LACTATE
     Indication: PRODUCT USED FOR UNKNOWN INDICATION
     Dosage: 2 G, UNK
     Route: 048
  25. FEBURIC [Concomitant]
     Active Substance: FEBUXOSTAT
     Dosage: 10 MG, UNK
     Route: 048
  26. LANTUS [Concomitant]
     Active Substance: INSULIN GLARGINE
     Indication: DIABETES MELLITUS
     Dosage: 2 DF,HS
     Route: 058
     Dates: start: 2007
  27. CALBLOCK [Concomitant]
     Active Substance: AZELNIDIPINE
     Indication: CHRONIC KIDNEY DISEASE
     Dosage: 16 MG,QD
     Route: 048
     Dates: start: 201204
  28. THYRADIN-S [Concomitant]
     Active Substance: LEVOTHYROXINE
     Dosage: 75 ?G, UNK
     Route: 048
     Dates: start: 20170208
  29. BONOTEO [Concomitant]
     Active Substance: MINODRONIC ACID
     Indication: PRODUCT USED FOR UNKNOWN INDICATION
     Dosage: 50 MG, UNK
     Route: 048

REACTIONS (4)
  - Fall [Unknown]
  - Keratitis bacterial [Not Recovered/Not Resolved]
  - Fracture [Not Recovered/Not Resolved]
  - Decreased appetite [Recovered/Resolved]

NARRATIVE: CASE EVENT DATE: 201207
